FAERS Safety Report 8838335 (Version 1)
Quarter: 2012Q4

REPORT INFORMATION
  Report Type: 
  Country: GB (occurrence: GB)
  Receive Date: 20121012
  Receipt Date: 20121012
  Transmission Date: 20130627
  Serious: Yes (Life-Threatening, Disabling, Other)
  Sender: FDA-Public Use
  Company Number: PHHY2012GB088178

PATIENT
  Age: 50 Year
  Sex: Female
  Weight: 50 kg

DRUGS (4)
  1. RISPERIDONE [Suspect]
     Indication: ABNORMAL BEHAVIOUR
     Dosage: 1 mg, QD
     Dates: start: 20080924
  2. ANTIBIOTICS [Concomitant]
     Indication: STAPHYLOCOCCAL INFECTION
     Dates: start: 201102
  3. ANTIBIOTICS [Concomitant]
     Indication: CLOSTRIDIAL INFECTION
     Dates: end: 201208
  4. ANALGESICS [Concomitant]
     Indication: PAIN

REACTIONS (15)
  - Pleurothotonus [Not Recovered/Not Resolved]
  - Aphasia [Not Recovered/Not Resolved]
  - Sydenham^s chorea [Unknown]
  - Emotional distress [Unknown]
  - Dyspnoea [Unknown]
  - Confusional state [Unknown]
  - Extrapyramidal disorder [Not Recovered/Not Resolved]
  - Dystonia [Not Recovered/Not Resolved]
  - Sedation [Unknown]
  - Salivary hypersecretion [Unknown]
  - Tardive dyskinesia [Unknown]
  - Spasmodic dysphonia [Unknown]
  - Somnolence [Unknown]
  - Muscle spasticity [Unknown]
  - Agitation [Unknown]
